FAERS Safety Report 5369013-X (Version None)
Quarter: 2007Q2

REPORT INFORMATION
  Report Type: 
  Country: None (occurrence: None)
  Receive Date: 20070625
  Receipt Date: 20061206
  Transmission Date: 20071010
  Serious: No
  Sender: FDA-Public Use
  Company Number: US-ASTRAZENECA-2006UW27161

PATIENT
  Age: 63 Year
  Sex: Female
  Weight: 60.8 kg

DRUGS (5)
  1. CRESTOR [Suspect]
     Indication: BLOOD CHOLESTEROL INCREASED
     Route: 048
     Dates: start: 20061206
  2. PREDNISONE TAB [Concomitant]
  3. NAPROXEN [Concomitant]
  4. ASPIRIN [Concomitant]
  5. VITAMIN D AND C [Concomitant]

REACTIONS (2)
  - FEELING JITTERY [None]
  - NERVOUSNESS [None]
